FAERS Safety Report 17252283 (Version 1)
Quarter: 2020Q1

REPORT INFORMATION
  Report Type: Spontaneous
  Country: SE (occurrence: SE)
  Receive Date: 20200108
  Receipt Date: 20200108
  Transmission Date: 20200409
  Serious: Yes (Disabling)
  Sender: FDA-Public Use
  Company Number: None

PATIENT
  Age: 21 Year
  Sex: Male
  Weight: 75 kg

DRUGS (6)
  1. OMEGA-3 ACIDS [Concomitant]
     Active Substance: OMEGA-3 FATTY ACIDS
  2. ELIDEL [Suspect]
     Active Substance: PIMECROLIMUS
     Indication: DERMATITIS ATOPIC
     Route: 061
  3. AZITHROMYCIN ANHYDROUS. [Suspect]
     Active Substance: AZITHROMYCIN ANHYDROUS
  4. DAKTAR [Concomitant]
  5. MULTIVITAMINS [Concomitant]
     Active Substance: VITAMINS
  6. VITAMIN D [Concomitant]
     Active Substance: VITAMIN D NOS

REACTIONS (14)
  - Scar [None]
  - Drug interaction [None]
  - Application site warmth [None]
  - Rash pruritic [None]
  - Pigmentation disorder [None]
  - Vision blurred [None]
  - Application site reaction [None]
  - Alcohol use [None]
  - Headache [None]
  - Skull malformation [None]
  - Application site erythema [None]
  - Product use issue [None]
  - Hypersensitivity [None]
  - Rash [None]
